FAERS Safety Report 4603108-0 (Version None)
Quarter: 2005Q1

REPORT INFORMATION
  Report Type: 
  Country: None (occurrence: None)
  Receive Date: 20050309
  Receipt Date: 20050222
  Transmission Date: 20050727
  Serious: Yes (Hospitalization)
  Sender: FDA-Public Use
  Company Number: A0548897A

PATIENT
  Age: 44 Year
  Sex: Female
  Weight: 50 kg

DRUGS (5)
  1. NICORETTE (MINT) [Suspect]
     Route: 002
     Dates: start: 20040501
  2. NICORETTE [Suspect]
     Route: 002
     Dates: start: 20040501
  3. OVRAL [Suspect]
  4. ZYRTEC [Concomitant]
  5. DOXYCYCLINE [Concomitant]

REACTIONS (9)
  - ANXIETY [None]
  - AORTIC OCCLUSION [None]
  - ATHEROSCLEROSIS [None]
  - BURNING SENSATION [None]
  - CHEST PAIN [None]
  - DYSPEPSIA [None]
  - INTENTIONAL MISUSE [None]
  - MYOCARDIAL INFARCTION [None]
  - THROAT IRRITATION [None]
